FAERS Safety Report 6843866-8 (Version None)
Quarter: 2010Q3

REPORT INFORMATION
  Report Type: 
  Country: None (occurrence: None)
  Receive Date: 20100715
  Receipt Date: 20100707
  Transmission Date: 20110219
  Serious: Yes (Hospitalization)
  Sender: FDA-Public Use
  Company Number: PHHO2009DE03154

PATIENT
  Sex: Male
  Weight: 71.5 kg

DRUGS (4)
  1. SANDIMMUNE [Suspect]
     Indication: RENAL TRANSPLANT
     Dosage: 200MG / DAILY
     Route: 048
     Dates: start: 20090224
  2. MYFORTIC [Suspect]
     Indication: RENAL TRANSPLANT
     Dosage: 1440MG / DAILY
     Route: 048
     Dates: start: 20090224
  3. SOLU-DECORTIN-H [Suspect]
     Indication: RENAL TRANSPLANT
     Dosage: 35 MG
  4. NO TREATMENT RECEIVED NOMED [Suspect]
     Indication: RENAL TRANSPLANT
     Route: 048

REACTIONS (3)
  - GRAFT LOSS [None]
  - NEPHRECTOMY [None]
  - RENAL VEIN THROMBOSIS [None]
